FAERS Safety Report 6905568-9 (Version None)
Quarter: 2010Q3

REPORT INFORMATION
  Report Type: 
  Country: None (occurrence: None)
  Receive Date: 20100804
  Receipt Date: 20100720
  Transmission Date: 20110219
  Serious: Yes (Hospitalization, Other)
  Sender: FDA-Public Use
  Company Number: US-ALEXION-A201000723

PATIENT
  Sex: Female
  Weight: 42.948 kg

DRUGS (9)
  1. SOLIRIS [Suspect]
     Indication: PAROXYSMAL NOCTURNAL HAEMOGLOBINURIA
     Dosage: 600 MG, QW
     Route: 042
     Dates: start: 20090801, end: 20090901
  2. SOLIRIS [Suspect]
     Dosage: 900 MG, Q2W
     Route: 042
     Dates: start: 20090901
  3. MULTI-VITAMINS [Concomitant]
     Dosage: UNK
  4. PROGRAF [Concomitant]
     Dosage: UNK
  5. URSODIOL [Concomitant]
     Dosage: UNK
  6. LOPRESSOR [Concomitant]
     Dosage: UNK
  7. COLACE [Concomitant]
     Dosage: UNK
  8. COUMADIN [Concomitant]
     Dosage: UNK
  9. PROTONIX [Concomitant]
     Dosage: UNK

REACTIONS (11)
  - ABDOMINAL ABSCESS [None]
  - DYSPEPSIA [None]
  - FATIGUE [None]
  - INCISIONAL HERNIA [None]
  - LUNG INFILTRATION [None]
  - NAUSEA [None]
  - POST PROCEDURAL HAEMATOMA [None]
  - RENAL FAILURE ACUTE [None]
  - SEPSIS [None]
  - VOMITING [None]
  - WOUND DEHISCENCE [None]
